FAERS Safety Report 13621921 (Version 2)
Quarter: 2018Q2

REPORT INFORMATION
  Report Type: Report from Study
  Country: US (occurrence: US)
  Receive Date: 20170607
  Receipt Date: 20180621
  Transmission Date: 20180711
  Serious: Yes (Other)
  Sender: FDA-Public Use
  Company Number: US-BRISTOL-MYERS SQUIBB COMPANY-BMS-2017-048698

PATIENT
  Sex: Male
  Weight: 72.11 kg

DRUGS (1)
  1. APIXABAN [Suspect]
     Active Substance: APIXABAN
     Indication: CEREBROVASCULAR ACCIDENT PROPHYLAXIS
     Dosage: 5 MG, BID
     Route: 048

REACTIONS (5)
  - Knee operation [Unknown]
  - Pain [Unknown]
  - Inflammation [Unknown]
  - Haemorrhage subcutaneous [Unknown]
  - Dementia [Unknown]

NARRATIVE: CASE EVENT DATE: 2015
